FAERS Safety Report 4421084-0 (Version None)
Quarter: 2004Q3

REPORT INFORMATION
  Report Type: 
  Country: None (occurrence: None)
  Receive Date: 20040707
  Receipt Date: 20040503
  Transmission Date: 20050211
  Serious: Yes (Other)
  Sender: FDA-Public Use
  Company Number: 366368

PATIENT
  Sex: Male

DRUGS (1)
  1. FUZEON [Suspect]
     Dates: start: 20030615

REACTIONS (2)
  - SKIN ATROPHY [None]
  - SKIN HYPERTROPHY [None]
